FAERS Safety Report 25255911 (Version 1)
Quarter: 2025Q2

REPORT INFORMATION
  Report Type: Spontaneous
  Country: BR (occurrence: BR)
  Receive Date: 20250430
  Receipt Date: 20250430
  Transmission Date: 20250717
  Serious: Yes (Other)
  Sender: PFIZER
  Company Number: BR-PFIZER INC-202400197721

PATIENT
  Age: 7 Year
  Sex: Male

DRUGS (1)
  1. VYNDAQEL [Suspect]
     Active Substance: TAFAMIDIS MEGLUMINE
     Indication: Familial amyloidosis
     Dates: start: 20250124

REACTIONS (4)
  - Haematochezia [Unknown]
  - Therapeutic response unexpected [Unknown]
  - Change of bowel habit [Unknown]
  - Off label use [Unknown]
